FAERS Safety Report 7655224-7 (Version None)
Quarter: 2011Q3

REPORT INFORMATION
  Report Type: 
  Country: None (occurrence: None)
  Receive Date: 20110729
  Receipt Date: 20110717
  Transmission Date: 20111222
  Serious: Yes (Other)
  Sender: FDA-Public Use
  Company Number: 2011SP033272

PATIENT
  Age: 59 Year
  Sex: Female
  Weight: 54 kg

DRUGS (3)
  1. STREPTOKINASE [Concomitant]
  2. DIPROSPAN (BETAMETHASONE SODIUM PHOSPHATE/DIPROPIONATE) (BETAMETHASONE [Suspect]
     Indication: EYE INFLAMMATION
     Dates: start: 20110625, end: 20110710
  3. DIPROSPAN (BETAMETHASONE SODIUM PHOSPHATE/DIPROPIONATE) (BETAMETHASONE [Suspect]
     Indication: POST PROCEDURAL COMPLICATION
     Dates: start: 20110625, end: 20110710

REACTIONS (5)
  - PHOTALGIA [None]
  - OCULAR HYPERAEMIA [None]
  - MYDRIASIS [None]
  - LACRIMATION INCREASED [None]
  - OCULAR DISCOMFORT [None]
